FAERS Safety Report 16063644 (Version 2)
Quarter: 2019Q1

REPORT INFORMATION
  Report Type: Spontaneous
  Country: PL (occurrence: PL)
  Receive Date: 20190312
  Receipt Date: 20190313
  Transmission Date: 20190418
  Serious: Yes (Death, Other)
  Sender: FDA-Public Use
  Company Number: PL-ASTRAZENECA-2019SE39613

PATIENT
  Sex: Male

DRUGS (1)
  1. IRESSA [Suspect]
     Active Substance: GEFITINIB
     Dosage: 250.0MG UNKNOWN
     Route: 048

REACTIONS (2)
  - Disease progression [Unknown]
  - Death [Fatal]
